FAERS Safety Report 18295976 (Version 1)
Quarter: 2020Q3

REPORT INFORMATION
  Report Type: Spontaneous
  Country: FR (occurrence: FR)
  Receive Date: 20200922
  Receipt Date: 20200922
  Transmission Date: 20201103
  Serious: Yes (Death, Other)
  Sender: FDA-Public Use
  Company Number: FR-LUNDBECK-DKLU3021345

PATIENT
  Age: 3 Year
  Sex: Male

DRUGS (7)
  1. CLOBAZAM. [Suspect]
     Active Substance: CLOBAZAM
     Indication: EPILEPSY
     Route: 048
     Dates: start: 201811
  2. BUCCOLAM [Concomitant]
     Active Substance: MIDAZOLAM HYDROCHLORIDE
     Indication: STATUS EPILEPTICUS
     Route: 065
     Dates: start: 20181210, end: 20181210
  3. TOPIRAMATE. [Suspect]
     Active Substance: TOPIRAMATE
     Indication: STATUS EPILEPTICUS
     Route: 065
     Dates: start: 20181210, end: 20181210
  4. DIAZEPAM. [Suspect]
     Active Substance: DIAZEPAM
     Indication: PRODUCT USED FOR UNKNOWN INDICATION
     Route: 065
     Dates: start: 20181210, end: 20181210
  5. CANNABIDIOL [Suspect]
     Active Substance: CANNABIDIOL
     Indication: EPILEPSY
     Route: 048
     Dates: start: 201806
  6. PHENYTOIN SODIUM. [Suspect]
     Active Substance: PHENYTOIN SODIUM
     Indication: STATUS EPILEPTICUS
     Route: 065
     Dates: start: 20181210, end: 20181210
  7. GARDENAL [Suspect]
     Active Substance: PHENOBARBITAL
     Indication: STATUS EPILEPTICUS
     Route: 065
     Dates: start: 20181210, end: 20181210

REACTIONS (3)
  - Status epilepticus [Fatal]
  - Hepatitis fulminant [Fatal]
  - Gastrointestinal haemorrhage [Fatal]

NARRATIVE: CASE EVENT DATE: 20181211
